FAERS Safety Report 7377679-8 (Version None)
Quarter: 2011Q1

REPORT INFORMATION
  Report Type: 
  Country: None (occurrence: None)
  Receive Date: 20110328
  Receipt Date: 20110317
  Transmission Date: 20110831
  Serious: Yes (Other)
  Sender: FDA-Public Use
  Company Number: CA-JNJFOC-20110308831

PATIENT
  Age: 28 Year
  Sex: Male
  Weight: 83.92 kg

DRUGS (3)
  1. CELEBREX [Concomitant]
     Indication: MUSCULOSKELETAL PAIN
     Dosage: FOR 3 DAYS
     Route: 048
  2. IMODIUM [Suspect]
     Indication: STRESS
     Dosage: 1 TABLET EVERY 30 MINUTES
     Route: 048
  3. IMODIUM [Suspect]
     Route: 048

REACTIONS (3)
  - OVERDOSE [None]
  - ABDOMINAL DISCOMFORT [None]
  - INTENTIONAL DRUG MISUSE [None]
